FAERS Safety Report 18525928 (Version 1)
Quarter: 2020Q4

REPORT INFORMATION
  Report Type: Report from Study
  Country: MX (occurrence: MX)
  Receive Date: 20201120
  Receipt Date: 20201120
  Transmission Date: 20210114
  Serious: Yes (Hospitalization, Other)
  Sender: FDA-Public Use
  Company Number: MX-TEVA-2020-MX-1851567

PATIENT
  Age: 61 Year
  Sex: Female
  Weight: 69.4 kg

DRUGS (10)
  1. CALTRATE 600+D [Concomitant]
     Indication: OSTEOPOROSIS
     Dates: start: 2012
  2. XERENEX TABLET 20 MG [Concomitant]
     Indication: DEPRESSION
     Dates: start: 201801
  3. ETANERCEPT SOLUTION FOR INJECTION IN PRE-FILLED SYRINGE [Suspect]
     Active Substance: ETANERCEPT
     Indication: RHEUMATOID ARTHRITIS
     Dosage: ETANERCEPT SOLUTION FOR INJECTION IN PRE-FILLED SYRINGE
     Route: 058
     Dates: start: 20161201, end: 20180614
  4. FOLIVITAL TABLET 4 MG [Concomitant]
     Indication: RHEUMATOID ARTHRITIS
     Dates: start: 2004
  5. METFORMIN [Concomitant]
     Active Substance: METFORMIN HYDROCHLORIDE
     Indication: DIABETES MELLITUS
     Dates: start: 2014, end: 20180130
  6. FLOTAC CAPSULE 140 MG [Concomitant]
     Indication: RHEUMATOID ARTHRITIS
     Dates: start: 2016
  7. ASPIRINA TABLET 100 MG [Concomitant]
     Indication: PERIPHERAL VENOUS DISEASE
     Dates: start: 2014
  8. LOSARTAN. [Concomitant]
     Active Substance: LOSARTAN
     Indication: HYPERTENSION
     Dates: start: 20180130, end: 20180702
  9. METICORTEN TABLET 5 MG [Concomitant]
     Indication: RHEUMATOID ARTHRITIS
     Dates: start: 2004
  10. TRIXILEM [METHOTREXATE] [Suspect]
     Active Substance: METHOTREXATE
     Indication: RHEUMATOID ARTHRITIS
     Route: 048
     Dates: start: 2004, end: 20180616

REACTIONS (2)
  - Cardiac failure [Recovered/Resolved]
  - Pneumonia [Recovered/Resolved]

NARRATIVE: CASE EVENT DATE: 20180621
